FAERS Safety Report 20518023 (Version 1)
Quarter: 2022Q1

REPORT INFORMATION
  Report Type: Spontaneous
  Country: US (occurrence: None)
  Receive Date: 20220224
  Receipt Date: 20220224
  Transmission Date: 20220423
  Serious: Yes (Hospitalization)
  Sender: FDA-Public Use
  Company Number: None

PATIENT
  Age: 65 Year
  Sex: Male
  Weight: 104.33 kg

DRUGS (1)
  1. LEVOTHYROXINE [Suspect]
     Active Substance: LEVOTHYROXINE
     Indication: Hypothyroidism
     Dosage: 1 TAB AM PO?
     Route: 048
     Dates: start: 20200826, end: 20201218

REACTIONS (9)
  - Presyncope [None]
  - Blood thyroid stimulating hormone abnormal [None]
  - Thyroxine free increased [None]
  - Fatigue [None]
  - Weight decreased [None]
  - Dizziness [None]
  - Fall [None]
  - Hypotension [None]
  - Syncope [None]

NARRATIVE: CASE EVENT DATE: 20201218
